FAERS Safety Report 9572932 (Version 3)
Quarter: 2014Q2

REPORT INFORMATION
  Report Type: Spontaneous
  Country: US (occurrence: US)
  Receive Date: 20131001
  Receipt Date: 20140428
  Transmission Date: 20141212
  Serious: No
  Sender: FDA-Public Use
  Company Number: US-BIOGENIDEC-2013BI068730

PATIENT
  Age: 44 Year
  Sex: Female

DRUGS (23)
  1. TECFIDERA [Suspect]
     Indication: MULTIPLE SCLEROSIS
     Route: 048
     Dates: start: 20130618
  2. TECFIDERA [Suspect]
     Indication: MULTIPLE SCLEROSIS
     Route: 048
     Dates: start: 20130625
  3. TECFIDERA [Suspect]
     Indication: MULTIPLE SCLEROSIS
     Route: 048
  4. BENADRYL [Concomitant]
  5. AMBIEN CR [Concomitant]
  6. DILAUDID [Concomitant]
  7. FIORICET [Concomitant]
  8. FOLIC ACID [Concomitant]
  9. HYDROCORTISONE [Concomitant]
  10. IBUPROFEN [Concomitant]
  11. LYRICA [Concomitant]
  12. MIRENA [Concomitant]
  13. OXCARBAZEPINE [Concomitant]
  14. PREVACID [Concomitant]
  15. PRO AIR HFA [Concomitant]
  16. SYNTHROID [Concomitant]
  17. TOPAMAX [Concomitant]
  18. VALIUM [Concomitant]
  19. VITAMIN B-12 [Concomitant]
  20. VITAMIN D [Concomitant]
  21. XOPENEX [Concomitant]
  22. ZANAFLEX [Concomitant]
  23. ZANTAC [Concomitant]

REACTIONS (2)
  - Urticaria [Not Recovered/Not Resolved]
  - Flushing [Unknown]
